FAERS Safety Report 10246285 (Version 1)
Quarter: 2014Q2

REPORT INFORMATION
  Report Type: Spontaneous
  Country: US (occurrence: None)
  Receive Date: 20140617
  Receipt Date: 20140617
  Transmission Date: 20141212
  Serious: Yes (Life-Threatening)
  Sender: FDA-Public Use
  Company Number: None

PATIENT
  Age: 19 Year
  Sex: Female
  Weight: 45.36 kg

DRUGS (1)
  1. AZITHROMYCIN [Suspect]
     Indication: COUGH
     Dosage: 2 PILLS ONCE DAILY TAKEN BY MOUTH
     Route: 048
     Dates: start: 20140616

REACTIONS (11)
  - Diarrhoea [None]
  - Screaming [None]
  - Gastrointestinal pain [None]
  - Discomfort [None]
  - Hyperhidrosis [None]
  - Disorientation [None]
  - Visual impairment [None]
  - Asthenia [None]
  - Balance disorder [None]
  - Abdominal pain upper [None]
  - Fall [None]
